FAERS Safety Report 7341166-3 (Version None)
Quarter: 2011Q1

REPORT INFORMATION
  Report Type: 
  Country: None (occurrence: None)
  Receive Date: 20110309
  Receipt Date: 20110121
  Transmission Date: 20110831
  Serious: Yes (Other)
  Sender: FDA-Public Use
  Company Number: B0695748A

PATIENT
  Sex: Female

DRUGS (2)
  1. LAMICTAL [Suspect]
     Indication: EPILEPSY
     Dosage: 100MG PER DAY
     Route: 048
     Dates: start: 20101216, end: 20110104
  2. RIVOTRIL [Concomitant]
     Indication: EPILEPSY
     Dosage: .5MG PER DAY
     Route: 048
     Dates: start: 20101216, end: 20110104

REACTIONS (12)
  - RASH PUSTULAR [None]
  - DRUG RASH WITH EOSINOPHILIA AND SYSTEMIC SYMPTOMS [None]
  - ERYTHEMA [None]
  - STEVENS-JOHNSON SYNDROME [None]
  - HEPATIC FUNCTION ABNORMAL [None]
  - PAPULE [None]
  - RASH [None]
  - LIP SWELLING [None]
  - LIP PAIN [None]
  - WHITE BLOOD CELL COUNT DECREASED [None]
  - PLATELET COUNT DECREASED [None]
  - GINGIVAL PAIN [None]
